FAERS Safety Report 8527994 (Version 2)
Quarter: 2012Q4

REPORT INFORMATION
  Report Type: 
  Country: BR (occurrence: BR)
  Receive Date: 20120424
  Receipt Date: 20120927
  Transmission Date: 20130627
  Serious: Yes (Other)
  Sender: FDA-Public Use
  Company Number: BR-ELI_LILLY_AND_COMPANY-BR201111000626

PATIENT
  Age: 82 None
  Sex: Female
  Weight: 76 kg

DRUGS (10)
  1. FORTEO [Suspect]
     Indication: OSTEOPOROSIS
     Dosage: UNK UNK, qd
     Route: 058
     Dates: start: 201107
  2. FORTEO [Suspect]
     Dosage: UNK, qd
     Route: 058
  3. VASOPRIL [Concomitant]
     Indication: HYPERTENSION
     Dosage: UNK, unknown
     Route: 065
  4. OMEPRAZOL [Concomitant]
     Dosage: UNK, unknown
     Route: 065
  5. GINKGO BILOBA [Concomitant]
     Indication: LABYRINTHITIS
     Dosage: UNK, unknown
     Route: 065
  6. CALCIUM CARBONATE [Concomitant]
     Indication: OSTEOPOROSIS
     Dosage: UNK, unknown
     Route: 065
  7. ALPHAGAN [Concomitant]
     Indication: CATARACT
     Dosage: UNK, unknown
     Route: 065
  8. LUMIGAN [Concomitant]
     Indication: CATARACT
     Dosage: UNK, unknown
     Route: 065
  9. OCUPRESS [Concomitant]
     Indication: CATARACT
     Dosage: UNK, unknown
     Route: 065
  10. ARTIFICIAL TEARS [Concomitant]
     Dosage: UNK, unknown
     Route: 065

REACTIONS (19)
  - Adverse event [Unknown]
  - Pneumonia [Recovered/Resolved]
  - Drug interaction [Unknown]
  - Influenza [Unknown]
  - Fatigue [Not Recovered/Not Resolved]
  - Depressed mood [Not Recovered/Not Resolved]
  - Decreased appetite [Not Recovered/Not Resolved]
  - Weight increased [Not Recovered/Not Resolved]
  - Oedema peripheral [Unknown]
  - Hyperhidrosis [Not Recovered/Not Resolved]
  - Dysstasia [Not Recovered/Not Resolved]
  - Pain [Recovered/Resolved]
  - Arthralgia [Not Recovered/Not Resolved]
  - Pain in extremity [Not Recovered/Not Resolved]
  - Somnolence [Not Recovered/Not Resolved]
  - Palpitations [Unknown]
  - Decreased interest [Not Recovered/Not Resolved]
  - Chest pain [Unknown]
  - Drug ineffective [Unknown]
